FAERS Safety Report 8059493-3 (Version None)
Quarter: 2012Q1

REPORT INFORMATION
  Report Type: 
  Country: None (occurrence: None)
  Receive Date: 20120120
  Receipt Date: 20120112
  Transmission Date: 20120608
  Serious: Yes (Other)
  Sender: FDA-Public Use
  Company Number: BE-ROCHE-1031656

PATIENT
  Age: 86 Year
  Sex: Male

DRUGS (7)
  1. ACETYLSALICYLIC ACID SRT [Concomitant]
  2. ZOCOR [Concomitant]
  3. HYGROTON [Concomitant]
  4. LUCENTIS [Suspect]
     Indication: AGE-RELATED MACULAR DEGENERATION
     Route: 050
     Dates: start: 20110801
  5. LUCENTIS [Suspect]
     Route: 050
     Dates: end: 20111101
  6. LORAZEPAM [Concomitant]
  7. AMLODIPINE [Concomitant]

REACTIONS (4)
  - INFLUENZA LIKE ILLNESS [None]
  - HAEMORRHAGE URINARY TRACT [None]
  - ANAL HAEMORRHAGE [None]
  - DIVERTICULUM INTESTINAL HAEMORRHAGIC [None]
